FAERS Safety Report 19399334 (Version 2)
Quarter: 2021Q2

REPORT INFORMATION
  Report Type: Spontaneous
  Country: FR (occurrence: FR)
  Receive Date: 20210610
  Receipt Date: 20210611
  Transmission Date: 20210717
  Serious: Yes (Hospitalization, Other)
  Sender: FDA-Public Use
  Company Number: NVSC2021FR115898

PATIENT
  Age: 45 Year
  Sex: Male

DRUGS (11)
  1. FLUCYTOSINE. [Concomitant]
     Active Substance: FLUCYTOSINE
     Indication: ANTIFUNGAL TREATMENT
     Dosage: 100 MG/KG
     Route: 065
  2. FLUCONAZOLE. [Interacting]
     Active Substance: FLUCONAZOLE
     Indication: CRYPTOCOCCOSIS
     Dosage: 400 MG, QD
     Route: 065
  3. LIP?AMPHOTERICIN [Concomitant]
     Active Substance: AMPHOTERICIN B
     Indication: ANTIFUNGAL TREATMENT
     Dosage: 3 MG/KG, QID
     Route: 065
  4. MYCOPHENOLATE MOFETIL. [Suspect]
     Active Substance: MYCOPHENOLATE MOFETIL
     Indication: IMMUNOSUPPRESSION
     Dosage: UNK
     Route: 065
     Dates: start: 201501, end: 201509
  5. TACROLIMUS. [Interacting]
     Active Substance: TACROLIMUS
     Indication: IMMUNOSUPPRESSANT DRUG THERAPY
     Dosage: UNK
     Route: 065
     Dates: start: 201501
  6. AZATHIOPRINE. [Concomitant]
     Active Substance: AZATHIOPRINE
     Indication: IMMUNOSUPPRESSANT DRUG THERAPY
     Dosage: UNK
     Route: 065
  7. TACROLIMUS. [Interacting]
     Active Substance: TACROLIMUS
     Indication: PROPHYLAXIS AGAINST TRANSPLANT REJECTION
  8. FLUCONAZOLE. [Interacting]
     Active Substance: FLUCONAZOLE
     Indication: ANTIFUNGAL TREATMENT
     Dosage: 800 MG, QD (ON DAY ONE )
     Route: 065
  9. TACROLIMUS. [Interacting]
     Active Substance: TACROLIMUS
     Indication: RENAL TRANSPLANT
  10. MYCOPHENOLATE MOFETIL. [Suspect]
     Active Substance: MYCOPHENOLATE MOFETIL
     Indication: PROPHYLAXIS AGAINST TRANSPLANT REJECTION
  11. AZATHIOPRINE. [Concomitant]
     Active Substance: AZATHIOPRINE
     Indication: RENAL TRANSPLANT

REACTIONS (4)
  - Drug interaction [Unknown]
  - Meningitis cryptococcal [Recovered/Resolved]
  - Drug level increased [Unknown]
  - Acute kidney injury [Recovered/Resolved]

NARRATIVE: CASE EVENT DATE: 201506
